FAERS Safety Report 8736710 (Version 2)
Quarter: 2012Q4

REPORT INFORMATION
  Report Type: 
  Country: US (occurrence: US)
  Receive Date: 20120822
  Receipt Date: 20120904
  Transmission Date: 20130627
  Serious: Yes (Other)
  Sender: FDA-Public Use
  Company Number: US-PFIZER INC-2012201029

PATIENT

DRUGS (5)
  1. ACCUPRIL [Suspect]
     Dosage: UNK
  2. CHANTIX [Suspect]
     Dosage: UNK
  3. LIPITOR [Suspect]
     Dosage: UNK
  4. NORVASC [Suspect]
     Dosage: UNK
  5. VIAGRA [Suspect]
     Dosage: UNK

REACTIONS (7)
  - Angina pectoris [Unknown]
  - Renal failure [Unknown]
  - Cardiac disorder [Unknown]
  - Blood potassium increased [Unknown]
  - Hypertension [Unknown]
  - Thyroid disorder [Unknown]
  - Blood magnesium decreased [Unknown]
